FAERS Safety Report 8123400-5 (Version None)
Quarter: 2012Q1

REPORT INFORMATION
  Report Type: 
  Country: None (occurrence: None)
  Receive Date: 20120208
  Receipt Date: 20120125
  Transmission Date: 20120608
  Serious: Yes (Death, Hospitalization)
  Sender: FDA-Public Use
  Company Number: US-MUTUAL PHARMACEUTICAL COMPANY, INC.-CLHC20120011

PATIENT
  Age: 58 Year
  Sex: Female

DRUGS (6)
  1. COLCHICINE [Suspect]
     Indication: PRODUCT USED FOR UNKNOWN INDICATION
     Route: 048
     Dates: end: 20100101
  2. UNSPECIFIED ANTIPSYCHOTICS [Concomitant]
     Indication: PRODUCT USED FOR UNKNOWN INDICATION
     Route: 065
     Dates: end: 20100101
  3. SIMVASTATIN [Suspect]
     Indication: PRODUCT USED FOR UNKNOWN INDICATION
     Route: 048
     Dates: end: 20100101
  4. ACETAMINOPHEN AND HYDROCODONE BITARTRATE [Suspect]
     Indication: PRODUCT USED FOR UNKNOWN INDICATION
     Route: 048
     Dates: end: 20100101
  5. CHLORDIAZEPOXIDE [Concomitant]
     Indication: PRODUCT USED FOR UNKNOWN INDICATION
     Route: 065
     Dates: end: 20100101
  6. LISINOPRIL AND HYDROCHLOROTHIAZIDE [Suspect]
     Indication: PRODUCT USED FOR UNKNOWN INDICATION
     Route: 048
     Dates: end: 20100101

REACTIONS (12)
  - HEPATIC FAILURE [None]
  - MULTIPLE DRUG OVERDOSE INTENTIONAL [None]
  - LEUKOCYTOSIS [None]
  - CARDIAC ARREST [None]
  - DISSEMINATED INTRAVASCULAR COAGULATION [None]
  - RESPIRATORY DISTRESS [None]
  - POLYCYTHAEMIA [None]
  - RENAL FAILURE [None]
  - BLOOD GLUCOSE INCREASED [None]
  - BLOOD CREATINE PHOSPHOKINASE INCREASED [None]
  - BRADYCARDIA [None]
  - HYPOTENSION [None]
